FAERS Safety Report 25698875 (Version 2)
Quarter: 2025Q3

REPORT INFORMATION
  Report Type: Spontaneous
  Country: US (occurrence: US)
  Receive Date: 20250819
  Receipt Date: 20250828
  Transmission Date: 20251020
  Serious: Yes (Hospitalization)
  Sender: AUROBINDO
  Company Number: US-AUROBINDO-AUR-APL-2025-041920

PATIENT
  Age: 12 Year
  Sex: Female

DRUGS (15)
  1. DOXYCYCLINE [Suspect]
     Active Substance: DOXYCYCLINE
     Indication: Marginal zone lymphoma
     Dosage: 100 MILLIGRAM, TWO TIMES A DAY
     Route: 065
  2. DOXYCYCLINE [Suspect]
     Active Substance: DOXYCYCLINE
     Dosage: 100 MILLIGRAM, FOUR TIMES/DAY
     Route: 065
  3. CETIRIZINE [Suspect]
     Active Substance: CETIRIZINE HYDROCHLORIDE
     Indication: Urticaria
     Route: 065
  4. FEXOFENADINE [Suspect]
     Active Substance: FEXOFENADINE HYDROCHLORIDE
     Indication: Urticaria
     Route: 065
  5. MONTELUKAST [Suspect]
     Active Substance: MONTELUKAST
     Indication: Urticaria
     Route: 065
  6. MOMETASONE FUROATE MONOHYDRATE [Suspect]
     Active Substance: MOMETASONE FUROATE MONOHYDRATE
     Indication: Urticaria
     Route: 065
  7. CLOBETASOL PROPIONATE [Suspect]
     Active Substance: CLOBETASOL PROPIONATE
     Indication: Urticaria
     Route: 061
  8. TRIAMCINOLONE [Suspect]
     Active Substance: TRIAMCINOLONE
     Indication: Urticaria
     Route: 026
  9. DIPHENHYDRAMINE [Suspect]
     Active Substance: DIPHENHYDRAMINE
     Indication: Allergy prophylaxis
     Route: 065
  10. HYDROCORTISONE [Suspect]
     Active Substance: HYDROCORTISONE
     Indication: Allergy prophylaxis
     Route: 065
  11. RANITIDINE [Concomitant]
     Active Substance: RANITIDINE
     Indication: Urticaria
     Route: 065
  12. ACETAMINOPHEN [Concomitant]
     Active Substance: ACETAMINOPHEN
     Indication: Allergy prophylaxis
     Route: 065
  13. RITUXIMAB [Concomitant]
     Active Substance: RITUXIMAB
     Indication: Marginal zone lymphoma
     Route: 065
  14. OMALIZUMAB [Concomitant]
     Active Substance: OMALIZUMAB
     Indication: Urticaria
     Route: 065
  15. OMALIZUMAB [Concomitant]
     Active Substance: OMALIZUMAB
     Indication: Mast cell activation syndrome

REACTIONS (2)
  - Drug ineffective [Unknown]
  - Urticaria [Recovered/Resolved]
